FAERS Safety Report 15496581 (Version 4)
Quarter: 2018Q4

REPORT INFORMATION
  Report Type: Spontaneous
  Country: IE (occurrence: IE)
  Receive Date: 20181013
  Receipt Date: 20181116
  Transmission Date: 20190205
  Serious: Yes (Life-Threatening, Hospitalization, Other)
  Sender: FDA-Public Use
  Company Number: IE-BRISTOL-MYERS SQUIBB COMPANY-BMS-2018-094774

PATIENT
  Sex: Male

DRUGS (2)
  1. YERVOY [Suspect]
     Active Substance: IPILIMUMAB
     Indication: METASTATIC MALIGNANT MELANOMA
     Dosage: UNK
     Route: 065
     Dates: start: 2018
  2. OPDIVO [Suspect]
     Active Substance: NIVOLUMAB
     Indication: METASTATIC MALIGNANT MELANOMA
     Dosage: UNAV
     Route: 065
     Dates: start: 2018

REACTIONS (13)
  - Neutropenic sepsis [Unknown]
  - Weight decreased [Unknown]
  - Sleep disorder [Unknown]
  - Speech disorder [Unknown]
  - Guillain-Barre syndrome [Unknown]
  - Incorrect dose administered [Unknown]
  - Rheumatoid arthritis [Unknown]
  - Prostatitis [Unknown]
  - Decreased appetite [Unknown]
  - Hepatic failure [Unknown]
  - Pyrexia [Unknown]
  - Neuropathy peripheral [Unknown]
  - Memory impairment [Unknown]

NARRATIVE: CASE EVENT DATE: 2018
